FAERS Safety Report 6750591-0 (Version None)
Quarter: 2010Q2

REPORT INFORMATION
  Report Type: 
  Country: None (occurrence: None)
  Receive Date: 20100528
  Receipt Date: 20100528
  Transmission Date: 20101027
  Serious: Yes (Hospitalization)
  Sender: FDA-Public Use
  Company Number: None

PATIENT
  Sex: Male
  Weight: 72.8 kg

DRUGS (2)
  1. TARCEVA [Suspect]
     Indication: SALIVARY GLAND CANCER
     Dosage: 150 MG DAY 1-28 PO
     Route: 048
     Dates: start: 20100426, end: 20100523
  2. VIDAZA [Suspect]
     Dosage: 190 MG DAY 1-4, DAY 15-18 SQ
     Route: 058
     Dates: start: 20100426, end: 20100514

REACTIONS (6)
  - DEHYDRATION [None]
  - FEELING ABNORMAL [None]
  - MALIGNANT NEOPLASM PROGRESSION [None]
  - SALIVARY GLAND CANCER [None]
  - URINARY TRACT INFECTION [None]
  - WEIGHT DECREASED [None]
